FAERS Safety Report 4501155-0 (Version None)
Quarter: 2004Q4

REPORT INFORMATION
  Report Type: 
  Country: None (occurrence: None)
  Receive Date: 20041109
  Receipt Date: 20041021
  Transmission Date: 20050328
  Serious: Yes (Death, Other)
  Sender: FDA-Public Use
  Company Number: US_020988096

PATIENT
  Age: 58 Year
  Sex: Male
  Weight: 47 kg

DRUGS (2)
  1. GEMZAR [Suspect]
     Indication: PANCREATIC CARCINOMA
     Dosage: 100 MG/M2
     Dates: start: 20020822, end: 20020905
  2. CILASTATIN SODIUM W/IMIPENEM [Concomitant]

REACTIONS (9)
  - BLOOD FIBRINOGEN INCREASED [None]
  - CEREBRAL INFARCTION [None]
  - DISSEMINATED INTRAVASCULAR COAGULATION [None]
  - FIBRIN D DIMER INCREASED [None]
  - FIBRIN DEGRADATION PRODUCTS INCREASED [None]
  - HEMIPLEGIA [None]
  - INFECTION [None]
  - RASH [None]
  - THROMBOCYTOPENIA [None]
